FAERS Safety Report 5222373-2 (Version None)
Quarter: 2007Q1

REPORT INFORMATION
  Report Type: 
  Country: None (occurrence: None)
  Receive Date: 20070129
  Receipt Date: 20070118
  Transmission Date: 20070707
  Serious: Yes (Hospitalization)
  Sender: FDA-Public Use
  Company Number: SE-GLAXOSMITHKLINE-B0449919A

PATIENT
  Age: 41 Year
  Sex: Female

DRUGS (3)
  1. PANODIL 500MG TABLETS [Suspect]
     Indication: BACK PAIN
     Route: 048
     Dates: start: 20060201, end: 20061013
  2. TRAMADOL HCL [Suspect]
     Indication: BACK PAIN
     Route: 048
     Dates: start: 20060201
  3. CYMBALTA [Suspect]
     Indication: DEPRESSION
     Dosage: 30MG PER DAY
     Route: 048
     Dates: start: 20061006, end: 20061013

REACTIONS (10)
  - ABDOMINAL PAIN UPPER [None]
  - BLOOD BILIRUBIN INCREASED [None]
  - FEELING COLD [None]
  - HEADACHE [None]
  - JAUNDICE [None]
  - LEUKOPENIA [None]
  - LIVER DISORDER [None]
  - MALAISE [None]
  - PYREXIA [None]
  - VOMITING [None]
